FAERS Safety Report 5955362-0 (Version None)
Quarter: 2008Q4

REPORT INFORMATION
  Report Type: 
  Country: None (occurrence: None)
  Receive Date: 20081112
  Receipt Date: 20081103
  Transmission Date: 20090506
  Serious: Yes (Hospitalization)
  Sender: FDA-Public Use
  Company Number: 100#03#2008-05531

PATIENT
  Age: 68 Year
  Sex: Female

DRUGS (8)
  1. CARBOPLATIN [Suspect]
     Indication: NON-SMALL CELL LUNG CANCER
     Dates: start: 20070124
  2. GEMZAR [Suspect]
     Indication: NON-SMALL CELL LUNG CANCER
     Dates: start: 20070124
  3. DIGOXIN [Concomitant]
  4. DILTIAZEM [Concomitant]
  5. FUROSEMIDE [Concomitant]
  6. GTN (GLYCERYL TRINITRATE) [Concomitant]
  7. WARFARIN SODIUM [Concomitant]
  8. UNSPECIFIED PLATINUM AGENT [Concomitant]

REACTIONS (6)
  - ASCITES [None]
  - HEPATIC FAILURE [None]
  - HEPATIC NECROSIS [None]
  - MALAISE [None]
  - OEDEMA [None]
  - PERITONITIS BACTERIAL [None]
